FAERS Safety Report 17049034 (Version 1)
Quarter: 2019Q4

REPORT INFORMATION
  Report Type: Spontaneous
  Country: US (occurrence: US)
  Receive Date: 20191021
  Receipt Date: 20191021
  Transmission Date: 20200122
  Serious: Yes (Hospitalization)
  Sender: FDA-Public Use
  Company Number: None

PATIENT
  Age: 60 Year
  Sex: Female

DRUGS (1)
  1. HUMIRA [Suspect]
     Active Substance: ADALIMUMAB
     Indication: PSORIATIC ARTHROPATHY
     Route: 058
     Dates: start: 20181230

REACTIONS (5)
  - Therapy cessation [None]
  - Pain [None]
  - Psoriasis [None]
  - Surgery [None]
  - Alopecia [None]

NARRATIVE: CASE EVENT DATE: 20191019
